FAERS Safety Report 10623042 (Version 1)
Quarter: 2014Q4

REPORT INFORMATION
  Report Type: Report from Study
  Country: IL (occurrence: IL)
  Receive Date: 20141203
  Receipt Date: 20141203
  Transmission Date: 20150529
  Serious: Yes (Hospitalization)
  Sender: FDA-Public Use
  Company Number: IL-BAYER-2014-176655

PATIENT
  Age: 60 Year
  Sex: Female

DRUGS (5)
  1. LEVOTHYROXINE [Concomitant]
     Active Substance: LEVOTHYROXINE
  2. ACETYLSALICYLIC ACID({=100 MG) [Interacting]
     Active Substance: ASPIRIN
  3. FUROSEMIDE. [Concomitant]
     Active Substance: FUROSEMIDE
  4. METHOTREXATE [Interacting]
     Active Substance: METHOTREXATE
     Indication: PNEUMONIA LIPOID
     Dosage: 7.5 MG, OW
  5. OMEPRAZOLE MAGNESIUM. [Suspect]
     Active Substance: OMEPRAZOLE MAGNESIUM

REACTIONS (4)
  - Mucosal inflammation [Recovered/Resolved]
  - Toxicity to various agents [None]
  - Labelled drug-drug interaction medication error [None]
  - Pancytopenia [Recovered/Resolved]
